FAERS Safety Report 5228700-4 (Version None)
Quarter: 2007Q1

REPORT INFORMATION
  Report Type: 
  Country: None (occurrence: None)
  Receive Date: 20070131
  Receipt Date: 20070116
  Transmission Date: 20070707
  Serious: Yes (Hospitalization)
  Sender: FDA-Public Use
  Company Number: 06-001216

PATIENT
  Age: 56 Year
  Sex: Female

DRUGS (3)
  1. DOVONEX [Suspect]
     Dates: start: 20060603, end: 20060615
  2. LEVOTHYROXINE SODIUM [Concomitant]
  3. GLYBURIDE AND METFORMIN HCL [Concomitant]

REACTIONS (3)
  - DERMATITIS CONTACT [None]
  - PAIN [None]
  - PHOTOSENSITIVITY REACTION [None]
